FAERS Safety Report 8381273-X (Version None)
Quarter: 2012Q2

REPORT INFORMATION
  Report Type: 
  Country: None (occurrence: None)
  Receive Date: 20120523
  Receipt Date: 20120514
  Transmission Date: 20120825
  Serious: Yes (Other)
  Sender: FDA-Public Use
  Company Number: US-MYLANLABS-2012S1008534

PATIENT
  Age: 61 Year
  Sex: Male

DRUGS (10)
  1. GABAPENTIN [Concomitant]
  2. ZOCOR [Concomitant]
  3. ASPIRIN [Concomitant]
  4. DOXAZOSIN MESYLATE [Concomitant]
  5. LOPRESSOR [Concomitant]
  6. FENTANYL-100 [Suspect]
     Indication: BACK PAIN
     Dosage: Q72H
     Route: 062
  7. PSEUDOEPHEDRINE HCL [Concomitant]
  8. HYDROCODONE [Concomitant]
     Dosage: 10MG/325MG
  9. FAMOTIDINE [Concomitant]
  10. CELEXA [Concomitant]

REACTIONS (7)
  - INCORRECT DRUG ADMINISTRATION DURATION [None]
  - DRUG WITHDRAWAL SYNDROME [None]
  - NERVOUSNESS [None]
  - COLD SWEAT [None]
  - TREMOR [None]
  - FEELING COLD [None]
  - RETCHING [None]
